FAERS Safety Report 8993241 (Version 1)
Quarter: 2013Q1

REPORT INFORMATION
  Report Type: Spontaneous
  Country: US (occurrence: US)
  Receive Date: 20130102
  Receipt Date: 20130102
  Transmission Date: 20140127
  Serious: No
  Sender: FDA-Public Use
  Company Number: US-PFIZER INC-2012333992

PATIENT
  Sex: Female

DRUGS (5)
  1. LYRICA [Suspect]
     Dosage: 75 MG, 2X/DAY
  2. CYMBALTA [Concomitant]
     Dosage: 90 MG, UNK
  3. OXYCONTIN [Concomitant]
     Dosage: UNK
  4. MORPHINE [Concomitant]
     Dosage: UNK
  5. GABAPENTIN [Concomitant]
     Dosage: 400 MG, 2X/DAY

REACTIONS (2)
  - Oral mucosal discolouration [Unknown]
  - Pain [Unknown]
